FAERS Safety Report 10224258 (Version 3)
Quarter: 2015Q1

REPORT INFORMATION
  Report Type: Spontaneous
  Country: CN (occurrence: CN)
  Receive Date: 20140609
  Receipt Date: 20150119
  Transmission Date: 20150720
  Serious: Yes (Hospitalization, Other)
  Sender: FDA-Public Use
  Company Number: PHHY2014CN070264

PATIENT
  Age: 54 Year
  Sex: Female

DRUGS (1)
  1. ACLASTA [Suspect]
     Active Substance: ZOLEDRONIC ACID
     Indication: OSTEOPOROSIS POSTMENOPAUSAL
     Dosage: 1 DF, 365 DAYS
     Route: 042
     Dates: start: 20140530

REACTIONS (31)
  - C-reactive protein increased [Unknown]
  - Thyroid neoplasm [Recovering/Resolving]
  - Haematocrit decreased [Recovering/Resolving]
  - Hypophosphataemia [Unknown]
  - Arthralgia [Unknown]
  - Hypokalaemia [Recovering/Resolving]
  - Blood lactate dehydrogenase increased [Unknown]
  - Bone density decreased [Unknown]
  - Osteomalacia [Recovering/Resolving]
  - Haemoglobin decreased [Recovering/Resolving]
  - Bone metabolism disorder [Unknown]
  - Neutrophil count increased [Recovering/Resolving]
  - Blood bicarbonate decreased [Recovering/Resolving]
  - Nephrolithiasis [Recovering/Resolving]
  - Blood parathyroid hormone increased [Unknown]
  - Fibrin D dimer increased [Recovering/Resolving]
  - Seizure [Recovering/Resolving]
  - Hypoaesthesia [Recovering/Resolving]
  - Blood 25-hydroxycholecalciferol decreased [Unknown]
  - Mobility decreased [Unknown]
  - Hepatic steatosis [Unknown]
  - Mean cell haemoglobin decreased [Unknown]
  - Arterial bruit [Recovering/Resolving]
  - Liver disorder [Recovering/Resolving]
  - Blood alkaline phosphatase increased [Unknown]
  - Urine phosphorus decreased [Unknown]
  - Hypocalcaemia [Unknown]
  - Urine calcium decreased [Unknown]
  - Calcinosis [Unknown]
  - Blood creatine phosphokinase increased [Recovering/Resolving]
  - Muscular weakness [Unknown]

NARRATIVE: CASE EVENT DATE: 20140531
